FAERS Safety Report 8469904-7 (Version None)
Quarter: 2012Q2

REPORT INFORMATION
  Report Type: 
  Country: None (occurrence: None)
  Receive Date: 20120627
  Receipt Date: 20120618
  Transmission Date: 20120825
  Serious: Yes (Other)
  Sender: FDA-Public Use
  Company Number: TR-AMGEN-TURSP2012038874

PATIENT
  Age: 59 Year
  Sex: Female

DRUGS (2)
  1. ENBREL [Suspect]
     Indication: PSORIASIS
     Dosage: 50 MG, WEEKLY
     Route: 058
     Dates: start: 20100310
  2. METHOTREXATE [Concomitant]
     Dosage: UNK

REACTIONS (5)
  - PSORIASIS [None]
  - NASAL POLYPS [None]
  - DYSPNOEA [None]
  - TACHYCARDIA [None]
  - INJECTION SITE PAIN [None]
